FAERS Safety Report 5521309-4 (Version None)
Quarter: 2007Q4

REPORT INFORMATION
  Report Type: 
  Country: None (occurrence: None)
  Receive Date: 20071119
  Receipt Date: 20061110
  Transmission Date: 20080405
  Serious: No
  Sender: FDA-Public Use
  Company Number: US-BOEHRINGER INGELHEIM PHARMACEUTICALS, INC.-2007-BP-00813BP

PATIENT
  Age: 83 Year
  Sex: Female

DRUGS (1)
  1. ZANTAC 150 [Suspect]
     Indication: URTICARIA
     Route: 048
     Dates: start: 20060101

REACTIONS (1)
  - INCORRECT DRUG ADMINISTRATION DURATION [None]
